FAERS Safety Report 22386360 (Version 1)
Quarter: 2023Q2

REPORT INFORMATION
  Report Type: Report from Study
  Country: CA (occurrence: CA)
  Receive Date: 20230530
  Receipt Date: 20230530
  Transmission Date: 20230721
  Serious: Yes (Other)
  Sender: FDA-Public Use
  Company Number: CA-002147023-NVSC2023CA121253

PATIENT
  Sex: Female

DRUGS (1)
  1. AIMOVIG [Suspect]
     Active Substance: ERENUMAB-AOOE
     Indication: Migraine
     Dosage: UNK
     Route: 042
     Dates: start: 20200221

REACTIONS (6)
  - Narcolepsy [Unknown]
  - Restless legs syndrome [Unknown]
  - Blood glucose increased [Unknown]
  - Stress [Unknown]
  - Migraine [Unknown]
  - Headache [Recovered/Resolved]
